FAERS Safety Report 10008557 (Version 1)
Quarter: 2014Q1

REPORT INFORMATION
  Report Type: Spontaneous
  Country: US (occurrence: US)
  Receive Date: 20140313
  Receipt Date: 20140313
  Transmission Date: 20141002
  Serious: No
  Sender: FDA-Public Use
  Company Number: US-009507513-1402USA013372

PATIENT
  Sex: Male

DRUGS (4)
  1. CORICIDIN HBP COLD AND FLU [Suspect]
     Indication: NASOPHARYNGITIS
     Dosage: UNK, ONCE
     Route: 048
     Dates: start: 20140207, end: 20140207
  2. CORICIDIN HBP COLD AND FLU [Suspect]
     Indication: COUGH
     Dosage: UNK, PRN
     Route: 048
  3. BENICAR [Suspect]
     Indication: PRODUCT USED FOR UNKNOWN INDICATION
     Dosage: UNK, UNKNOWN
     Dates: start: 20140207
  4. COLD-EEZE LOZENGES (ZINC GLUCONATE) [Suspect]
     Indication: PRODUCT USED FOR UNKNOWN INDICATION
     Dosage: UNK, UNKNOWN
     Dates: start: 20140207

REACTIONS (3)
  - Euphoric mood [Unknown]
  - Decreased appetite [Unknown]
  - Malaise [Unknown]
